FAERS Safety Report 10478804 (Version 1)
Quarter: 2014Q3

REPORT INFORMATION
  Report Type: Spontaneous
  Country: US (occurrence: US)
  Receive Date: 20140926
  Receipt Date: 20140926
  Transmission Date: 20150326
  Serious: Yes (Hospitalization, Other)
  Sender: FDA-Public Use
  Company Number: US-PFIZER INC-2014263358

PATIENT
  Age: 53 Year
  Sex: Female
  Weight: 86.17 kg

DRUGS (4)
  1. ROPINIROLE. [Concomitant]
     Active Substance: ROPINIROLE
     Indication: RESTLESS LEGS SYNDROME
     Dosage: 0.25 MG, 1X/DAY
  2. BUPROPION [Concomitant]
     Active Substance: BUPROPION
     Indication: DEPRESSION
     Dosage: 150 MG, 1X/DAY
  3. TACROLIMUS. [Concomitant]
     Active Substance: TACROLIMUS
     Indication: IMMUNOSUPPRESSANT DRUG THERAPY
     Dosage: 3 MG IN THE MORNING AND 4MG IN THE EVENING
  4. LYRICA [Suspect]
     Active Substance: PREGABALIN
     Indication: SPINAL DISORDER
     Dosage: 450MG(150MG IN EVENING AND THE OTHER 300 MG IN THE EVENING, 1X/DAY
     Route: 048
     Dates: start: 201303

REACTIONS (3)
  - Hepatic cancer metastatic [Unknown]
  - Metastases to bone [Unknown]
  - Metastases to neck [Unknown]

NARRATIVE: CASE EVENT DATE: 201407
